FAERS Safety Report 6633181-X (Version None)
Quarter: 2010Q1

REPORT INFORMATION
  Report Type: 
  Country: None (occurrence: None)
  Receive Date: 20100312
  Receipt Date: 20100308
  Transmission Date: 20100710
  Serious: Yes (Death, Hospitalization, Other)
  Sender: FDA-Public Use
  Company Number: PHHY2010US13829

PATIENT
  Age: 41 Year
  Sex: Male

DRUGS (10)
  1. CYCLOSPORINE [Suspect]
     Indication: CORD BLOOD TRANSPLANT THERAPY
  2. MYCOPHENOLATE MOFETIL [Suspect]
     Indication: CORD BLOOD TRANSPLANT THERAPY
  3. IMMU-G [Concomitant]
     Indication: PROPHYLAXIS AGAINST GRAFT VERSUS HOST DISEASE
     Dosage: 500 MG/KG, QW
     Route: 042
  4. IMMU-G [Concomitant]
     Indication: ENCEPHALITIS CYTOMEGALOVIRUS
     Dosage: 500 MG/KG, Q48H
     Route: 042
  5. CYCLOPHOSPHAMIDE [Concomitant]
     Indication: CORD BLOOD TRANSPLANT THERAPY
  6. FLUDARABINE [Concomitant]
     Indication: CORD BLOOD TRANSPLANT THERAPY
  7. ANTITHYMOCYTE IMMUNOGLOBULIN [Concomitant]
     Indication: CORD BLOOD TRANSPLANT THERAPY
     Dosage: TOTAL DOSE OF 2.75 MG/KG
  8. IRRADIATION [Concomitant]
     Indication: CORD BLOOD TRANSPLANT THERAPY
  9. GANCICLOVIR [Concomitant]
     Indication: PROPHYLAXIS
     Dosage: 6 MG/KG PER DAY
     Route: 042
  10. GANCICLOVIR [Concomitant]
     Dosage: 5 MG/KG, Q12H
     Route: 042

REACTIONS (9)
  - ACUTE GRAFT VERSUS HOST DISEASE IN SKIN [None]
  - CEREBRAL DISORDER [None]
  - CYTOMEGALOVIRUS VIRAEMIA [None]
  - DISORIENTATION [None]
  - ENCEPHALITIS CYTOMEGALOVIRUS [None]
  - MEMORY IMPAIRMENT [None]
  - NEPHROPATHY TOXIC [None]
  - NEUROLOGICAL DECOMPENSATION [None]
  - RENAL FAILURE [None]
